FAERS Safety Report 5689570-3 (Version None)
Quarter: 2008Q1

REPORT INFORMATION
  Report Type: 
  Country: None (occurrence: None)
  Receive Date: 20080331
  Receipt Date: 20080321
  Transmission Date: 20080703
  Serious: Yes (Disabling)
  Sender: FDA-Public Use
  Company Number: JP-MERCK-0803USA01949

PATIENT
  Age: 77 Year
  Sex: Male
  Weight: 54 kg

DRUGS (3)
  1. HYZAAR [Suspect]
     Indication: HYPERTENSION
     Route: 048
     Dates: start: 20071102
  2. NORVASC [Suspect]
     Indication: HYPERTENSION
     Route: 048
     Dates: start: 20071215
  3. NORVASC [Suspect]
     Route: 048
     Dates: start: 20070313, end: 20070725

REACTIONS (1)
  - LOSS OF CONSCIOUSNESS [None]
